FAERS Safety Report 5245384-X (Version None)
Quarter: 2007Q1

REPORT INFORMATION
  Report Type: 
  Country: None (occurrence: None)
  Receive Date: 20070223
  Receipt Date: 20070209
  Transmission Date: 20070707
  Serious: Yes (Other)
  Sender: FDA-Public Use
  Company Number: US-ELI_LILLY_AND_COMPANY-US200701004458

PATIENT
  Sex: Female

DRUGS (4)
  1. EVISTA [Suspect]
     Indication: HORMONE REPLACEMENT THERAPY
     Dosage: UNK, UNK
     Route: 048
  2. EVISTA [Suspect]
     Dosage: UNK, UNK
     Route: 048
     Dates: start: 20070122
  3. VENLAFAXINE HYDROCHLORIDE [Concomitant]
  4. ESZOPICLONE [Concomitant]

REACTIONS (1)
  - BREAST CANCER IN SITU [None]
